FAERS Safety Report 5091270-8 (Version None)
Quarter: 2006Q3

REPORT INFORMATION
  Report Type: 
  Country: None (occurrence: None)
  Receive Date: 20060824
  Receipt Date: 20060814
  Transmission Date: 20061208
  Serious: Yes (Other)
  Sender: FDA-Public Use
  Company Number: 2006097735

PATIENT

DRUGS (5)
  1. ZOLOFT [Suspect]
     Indication: DRUG USE FOR UNKNOWN INDICATION
     Dosage: (300 MG,)
  2. . [Suspect]
  3. . [Suspect]
  4. . [Suspect]
  5. .. [Suspect]

REACTIONS (2)
  - INCORRECT DOSE ADMINISTERED [None]
  - UNEVALUABLE EVENT [None]
